FAERS Safety Report 16166961 (Version 1)
Quarter: 2019Q2

REPORT INFORMATION
  Report Type: Spontaneous
  Country: US (occurrence: US)
  Receive Date: 20190408
  Receipt Date: 20190408
  Transmission Date: 20190711
  Serious: Yes (Death, Other)
  Sender: FDA-Public Use
  Company Number: US-SA-2019SA095622

PATIENT
  Age: 57 Year
  Sex: Male

DRUGS (1)
  1. ENOXAPARIN SODIUM. [Suspect]
     Active Substance: ENOXAPARIN SODIUM
     Indication: ACUTE MYOCARDIAL INFARCTION
     Dosage: UNK UNK, UNK
     Route: 065

REACTIONS (14)
  - Unresponsive to stimuli [Unknown]
  - Bradycardia [Fatal]
  - Brain herniation [Fatal]
  - Brain oedema [Fatal]
  - Subdural haemorrhage [Fatal]
  - Hypotension [Fatal]
  - Agitation [Fatal]
  - Pupillary reflex impaired [Fatal]
  - Hypertension [Fatal]
  - Intracranial pressure increased [Fatal]
  - Coma scale abnormal [Unknown]
  - Diabetic ketoacidosis [Unknown]
  - Respiratory depression [Fatal]
  - Sedation [Fatal]
